FAERS Safety Report 20848787 (Version 1)
Quarter: 2022Q2

REPORT INFORMATION
  Report Type: Spontaneous
  Country: US (occurrence: US)
  Receive Date: 20220519
  Receipt Date: 20220519
  Transmission Date: 20220720
  Serious: No
  Sender: FDA-Public Use
  Company Number: USA--2022-US-000187

PATIENT
  Age: 63 Year
  Sex: Male

DRUGS (1)
  1. LATANOPROST [Suspect]
     Active Substance: LATANOPROST
     Dosage: 1 GGT OU QD HS
     Dates: start: 20220306

REACTIONS (3)
  - Headache [Unknown]
  - Dizziness [Unknown]
  - Vision blurred [Unknown]
